FAERS Safety Report 18080162 (Version 1)
Quarter: 2020Q3

REPORT INFORMATION
  Report Type: Spontaneous
  Country: US (occurrence: US)
  Receive Date: 20200728
  Receipt Date: 20200728
  Transmission Date: 20201103
  Serious: Yes (Other)
  Sender: FDA-Public Use
  Company Number: None

PATIENT
  Age: 38 Year
  Sex: Female
  Weight: 89.1 kg

DRUGS (7)
  1. LYRICA [Concomitant]
     Active Substance: PREGABALIN
  2. BIOTIN 5MG CAPSULES [Concomitant]
  3. XELJANZ [Suspect]
     Active Substance: TOFACITINIB CITRATE
     Indication: RHEUMATOID ARTHRITIS
     Route: 048
  4. OXYCODONE 10MG TABLETS [Concomitant]
  5. SYNTHROID 25MCG TABLETS [Concomitant]
  6. TIZANIDINE 4MG TABLETS [Concomitant]
     Active Substance: TIZANIDINE HYDROCHLORIDE
  7. TYLENOL 325MG TABLETS [Concomitant]

REACTIONS (6)
  - Urinary tract infection [None]
  - Abdominal distension [None]
  - Dyspepsia [None]
  - Abdominal discomfort [None]
  - Musculoskeletal discomfort [None]
  - Tinea pedis [None]

NARRATIVE: CASE EVENT DATE: 20200716
